FAERS Safety Report 5724402-6 (Version None)
Quarter: 2008Q2

REPORT INFORMATION
  Report Type: 
  Country: None (occurrence: None)
  Receive Date: 20080429
  Receipt Date: 20080421
  Transmission Date: 20081010
  Serious: Yes (Other)
  Sender: FDA-Public Use
  Company Number: CHNY2008AU01744

PATIENT
  Sex: Female

DRUGS (4)
  1. BENEFIBER W/ WHEAT DEXTRIN (NCH)(WHEAT DEXTRIN) UNKNOWN [Suspect]
     Dosage: ORAL
     Route: 048
  2. MICARDIS [Concomitant]
  3. CALTRATE (CALCIUM CARBONATE) [Concomitant]
  4. OMEGA TABLETS [Concomitant]

REACTIONS (2)
  - BLOOD PRESSURE INCREASED [None]
  - HEART RATE INCREASED [None]
